FAERS Safety Report 5019069-9 (Version None)
Quarter: 2006Q2

REPORT INFORMATION
  Report Type: 
  Country: None (occurrence: None)
  Receive Date: 20060606
  Receipt Date: 20060322
  Transmission Date: 20061013
  Serious: Yes (Hospitalization, Other)
  Sender: FDA-Public Use
  Company Number: CL-BRISTOL-MYERS SQUIBB COMPANY-13324157

PATIENT
  Age: 64 Year
  Sex: Male

DRUGS (7)
  1. CDDP [Suspect]
     Indication: GASTRIC CANCER
     Route: 041
     Dates: start: 20051219, end: 20060227
  2. FLUOROURACIL [Suspect]
     Indication: GASTRIC CANCER
     Route: 041
     Dates: start: 20051219, end: 20060304
  3. ATENOLOL [Concomitant]
     Indication: HYPERTENSION
     Route: 048
     Dates: start: 19940101
  4. ALPRAZOLAM [Concomitant]
     Indication: INSOMNIA
     Route: 048
     Dates: start: 19940101
  5. SUCRALFATE [Concomitant]
     Indication: REFLUX GASTRITIS
     Route: 048
     Dates: start: 20060306
  6. VITAMIN B COMPLEX CAP [Concomitant]
     Indication: PROPHYLAXIS
     Route: 048
     Dates: start: 20060225
  7. ONDANSETRON HCL [Concomitant]
     Indication: PROPHYLAXIS
     Route: 048
     Dates: start: 20060227, end: 20060228

REACTIONS (1)
  - PNEUMONIA [None]
